FAERS Safety Report 21302531 (Version 1)
Quarter: 2022Q3

REPORT INFORMATION
  Report Type: Spontaneous
  Country: US (occurrence: US)
  Receive Date: 20220907
  Receipt Date: 20220907
  Transmission Date: 20221026
  Serious: Yes (Other)
  Sender: FDA-Public Use
  Company Number: US-JNJFOC-20220862736

PATIENT
  Sex: Male

DRUGS (2)
  1. ULTRAM [Suspect]
     Active Substance: TRAMADOL HYDROCHLORIDE
     Indication: Product used for unknown indication
     Route: 065
     Dates: start: 2016, end: 2020
  2. TRAMADOL HYDROCHLORIDE [Interacting]
     Active Substance: TRAMADOL HYDROCHLORIDE
     Indication: Product used for unknown indication
     Route: 065
     Dates: start: 202011, end: 20211224

REACTIONS (6)
  - Blindness unilateral [Unknown]
  - Feeling abnormal [Unknown]
  - Feeling abnormal [Unknown]
  - Eye pain [Unknown]
  - Drug interaction [Unknown]
  - Expired product administered [Unknown]
